FAERS Safety Report 5495684-3 (Version None)
Quarter: 2007Q4

REPORT INFORMATION
  Report Type: 
  Country: None (occurrence: None)
  Receive Date: 20071018
  Receipt Date: 20070815
  Transmission Date: 20080405
  Serious: Yes (Other)
  Sender: FDA-Public Use
  Company Number: 2007033585

PATIENT
  Age: 59 Year
  Sex: Male
  Weight: 84.5 kg

DRUGS (9)
  1. NEURONTIN [Suspect]
     Indication: HYPOAESTHESIA
     Dosage: 900 MG (300 MG, 3 IN 1 D)
     Dates: start: 20070201
  2. NEURONTIN [Suspect]
     Indication: PAIN
     Dosage: 900 MG (300 MG, 3 IN 1 D)
     Dates: start: 20070201
  3. NEURONTIN [Suspect]
     Indication: PARAESTHESIA
     Dosage: 900 MG (300 MG, 3 IN 1 D)
     Dates: start: 20070201
  4. NEXIUM [Concomitant]
  5. LOPID [Concomitant]
  6. ACYCLOVIR [Concomitant]
  7. ACETYLSALICYLIC ACID SRT [Concomitant]
  8. MYFORTIC (MYCOPHENOLIC ACID SODIUM SALT) [Concomitant]
  9. PREDNISONE [Concomitant]

REACTIONS (8)
  - ANOREXIA [None]
  - CHILLS [None]
  - DRUG DOSE OMISSION [None]
  - FEELING HOT [None]
  - HYPERHIDROSIS [None]
  - PERIPHERAL COLDNESS [None]
  - SPINAL DISORDER [None]
  - WEIGHT DECREASED [None]
